FAERS Safety Report 17267846 (Version 1)
Quarter: 2020Q1

REPORT INFORMATION
  Report Type: Spontaneous
  Country: US (occurrence: US)
  Receive Date: 20200114
  Receipt Date: 20200114
  Transmission Date: 20200409
  Serious: No
  Sender: FDA-Public Use
  Company Number: US-PFIZER INC-2019469722

PATIENT
  Age: 66 Year
  Sex: Female

DRUGS (1)
  1. DOCETAXEL. [Suspect]
     Active Substance: DOCETAXEL
     Indication: BREAST CANCER
     Dosage: CYCLIC (6 CYCLES)
     Dates: start: 2013, end: 20140114

REACTIONS (5)
  - Hair disorder [Unknown]
  - Alopecia [Unknown]
  - Hair texture abnormal [Unknown]
  - Madarosis [Unknown]
  - Hair colour changes [Unknown]

NARRATIVE: CASE EVENT DATE: 2014
